FAERS Safety Report 11361560 (Version 1)
Quarter: 2015Q3

REPORT INFORMATION
  Report Type: Spontaneous
  Country: US (occurrence: US)
  Receive Date: 20150810
  Receipt Date: 20150810
  Transmission Date: 20151125
  Serious: No
  Sender: FDA-Public Use
  Company Number: US-BIOGENIDEC-2015BI110504

PATIENT
  Age: 56 Year
  Sex: Female

DRUGS (8)
  1. ACYCLOVIR. [Concomitant]
     Active Substance: ACYCLOVIR
  2. VITAMIN D [Concomitant]
     Active Substance: CHOLECALCIFEROL
  3. VITAMINB B COMPLEX [Concomitant]
  4. CALCIUM 1000+D [Concomitant]
  5. VITAMIN C [Concomitant]
     Active Substance: ASCORBIC ACID
  6. TECFIDERA [Suspect]
     Active Substance: DIMETHYL FUMARATE
     Indication: MULTIPLE SCLEROSIS
     Route: 048
     Dates: start: 20150119
  7. VITAMIN B1 [Concomitant]
     Active Substance: THIAMINE HYDROCHLORIDE
  8. GLUCOSAMINE COMPLEX [Concomitant]
     Active Substance: GLUCOSAMINE\GLUCOSAMINE SULFATE

REACTIONS (2)
  - Miliaria [Not Recovered/Not Resolved]
  - Flushing [Not Recovered/Not Resolved]
